FAERS Safety Report 24336190 (Version 1)
Quarter: 2024Q3

REPORT INFORMATION
  Report Type: Spontaneous
  Country: FR (occurrence: FR)
  Receive Date: 20240919
  Receipt Date: 20240919
  Transmission Date: 20241016
  Serious: No
  Sender: ROCHE
  Company Number: None

PATIENT
  Age: 73 Year
  Sex: Male
  Weight: 70.0 kg

DRUGS (1)
  1. TAMIFLU [Suspect]
     Active Substance: OSELTAMIVIR PHOSPHATE
     Indication: Influenza
     Dosage: GIVEN 0.2.2 INSTEAD OF 1.0.1
     Route: 065
     Dates: start: 20240123, end: 20240123

REACTIONS (2)
  - Hypertension [Recovered/Resolved]
  - Incorrect dose administered [Unknown]

NARRATIVE: CASE EVENT DATE: 20240123
